FAERS Safety Report 13922198 (Version 1)
Quarter: 2017Q3

REPORT INFORMATION
  Report Type: Report from Study
  Country: BR (occurrence: BR)
  Receive Date: 20170830
  Receipt Date: 20170830
  Transmission Date: 20171127
  Serious: Yes (Hospitalization)
  Sender: FDA-Public Use
  Company Number: BR-BAYER-2017-093011

PATIENT
  Age: 66 Year
  Sex: Female

DRUGS (4)
  1. ATENOLOL. [Concomitant]
     Active Substance: ATENOLOL
     Indication: HYPERTENSION
     Dosage: UNK
     Route: 048
  2. VALSARTAN. [Concomitant]
     Active Substance: VALSARTAN
     Indication: HYPERTENSION
     Dosage: 1 DF, BID
     Route: 048
  3. NEXAVAR [Suspect]
     Active Substance: SORAFENIB
     Indication: THYROID CANCER
     Dosage: 2 DF, BID
     Route: 048
     Dates: start: 20170510
  4. PURAN [Concomitant]
     Active Substance: LEVOTHYROXINE SODIUM
     Indication: THYROID DISORDER
     Dosage: 1 DF, QD
     Route: 048

REACTIONS (7)
  - Head discomfort [Not Recovered/Not Resolved]
  - Bradyphrenia [None]
  - Seizure [Recovered/Resolved]
  - Blood calcium decreased [Recovered/Resolved]
  - Vasospasm [Not Recovered/Not Resolved]
  - Tremor [None]
  - Confusional state [None]

NARRATIVE: CASE EVENT DATE: 20170511
